FAERS Safety Report 9036859 (Version 1)
Quarter: 2013Q1

REPORT INFORMATION
  Report Type: Spontaneous
  Country: US (occurrence: None)
  Receive Date: 20130123
  Receipt Date: 20130123
  Transmission Date: 20140127
  Serious: Yes (Other)
  Sender: FDA-Public Use
  Company Number: None

PATIENT
  Age: 79 Year
  Sex: Male
  Weight: 84.82 kg

DRUGS (22)
  1. CEFTAROLINE 600MG FOREST PHARMACEUTICALS [Suspect]
     Indication: CELLULITIS
     Route: 042
     Dates: start: 20130111, end: 20130112
  2. ASA [Concomitant]
  3. BENZONATATE [Concomitant]
  4. CILOSTAZOL [Concomitant]
  5. CYANOCOBALAMIN [Concomitant]
  6. DILTIAZEM [Concomitant]
  7. ENOXAPARIN [Concomitant]
  8. FERROUS SULFATE [Concomitant]
  9. FLUTICASONE [Concomitant]
  10. FUROSEMIDE [Concomitant]
  11. GUAIFENESIN [Concomitant]
  12. METOPROLOL [Concomitant]
  13. MULTIVITAMIN [Concomitant]
  14. PANTOPRAZOLE [Concomitant]
  15. POTASSIUM CHLORIDE [Concomitant]
  16. SIMVASTATIN [Concomitant]
  17. VALSARTAN [Concomitant]
  18. APAP [Concomitant]
  19. DOCUSATE [Concomitant]
  20. LORAZEPAM [Concomitant]
  21. MAALOX [Concomitant]
  22. ONDANSETRON [Concomitant]

REACTIONS (1)
  - Thrombocytopenia [None]
